FAERS Safety Report 7776235 (Version 15)
Quarter: 2014Q3

REPORT INFORMATION
  Report Type: Report from Study
  Country: CA (occurrence: CA)
  Receive Date: 20110127
  Receipt Date: 20140716
  Transmission Date: 20150326
  Serious: Yes (Hospitalization, Other)
  Sender: FDA-Public Use
  Company Number: PHHY2010CA09409

PATIENT
  Sex: Male

DRUGS (4)
  1. SANDOSTATIN LAR DEPOT [Suspect]
     Active Substance: OCTREOTIDE ACETATE
     Indication: CARCINOID TUMOUR
     Dosage: 30 MG, QMO
     Route: 030
     Dates: start: 20100216
  2. POTASSIUM [Concomitant]
     Active Substance: POTASSIUM
     Dosage: 50 MG, UNK
  3. SANDOSTATIN LAR DEPOT [Suspect]
     Active Substance: OCTREOTIDE ACETATE
     Dosage: 30 MG, EVERY 4 WEEKS
     Route: 030
  4. ZOLADEX [Concomitant]
     Active Substance: GOSERELIN ACETATE
     Dosage: UNK UKN, UNK

REACTIONS (16)
  - Poor quality sleep [Recovered/Resolved]
  - Nausea [Unknown]
  - Dementia Alzheimer^s type [Not Recovered/Not Resolved]
  - Hypertension [Unknown]
  - Feeling abnormal [Unknown]
  - Weight decreased [Unknown]
  - Contusion [Unknown]
  - Restlessness [Recovered/Resolved]
  - Ear pain [Recovering/Resolving]
  - Dysuria [Unknown]
  - Fall [Unknown]
  - Malaise [Unknown]
  - Decreased appetite [Recovering/Resolving]
  - Diarrhoea [Unknown]
  - Fatigue [Unknown]
  - Prostatic obstruction [Unknown]
